FAERS Safety Report 7284859-9 (Version None)
Quarter: 2011Q1

REPORT INFORMATION
  Report Type: 
  Country: None (occurrence: None)
  Receive Date: 20110210
  Receipt Date: 20110207
  Transmission Date: 20110831
  Serious: Yes (Hospitalization)
  Sender: FDA-Public Use
  Company Number: US-B.I. PHARMACEUTICALS,INC./RIDGEFIELD-2011-BP-00386BP

PATIENT
  Sex: Male

DRUGS (3)
  1. ZOCOR [Concomitant]
  2. SPIRIVA [Suspect]
     Indication: CHRONIC OBSTRUCTIVE PULMONARY DISEASE
  3. PROVENTIL [Concomitant]

REACTIONS (4)
  - ASPIRATION [None]
  - SYNCOPE [None]
  - EPISTAXIS [None]
  - VOCAL CORD PARALYSIS [None]
